FAERS Safety Report 6463082-1 (Version None)
Quarter: 2009Q4

REPORT INFORMATION
  Report Type: 
  Country: None (occurrence: None)
  Receive Date: 20091124
  Receipt Date: 20091112
  Transmission Date: 20100525
  Serious: Yes (Other)
  Sender: FDA-Public Use
  Company Number: 233016K09USA

PATIENT
  Age: 38 Year
  Sex: Female
  Weight: 95 kg

DRUGS (3)
  1. REBIF [Suspect]
     Indication: MULTIPLE SCLEROSIS
     Dosage: 44 MCG, 3 IN 1 WEEKS, SUBCUTANEOUS
     Route: 058
     Dates: start: 20081124
  2. METFORMIN HCL [Concomitant]
  3. TRAZODONE HCL [Concomitant]

REACTIONS (6)
  - ARTHRITIS [None]
  - DIZZINESS [None]
  - HYPOAESTHESIA [None]
  - INJECTION SITE ERYTHEMA [None]
  - INJECTION SITE PAIN [None]
  - PAIN IN EXTREMITY [None]
